FAERS Safety Report 5952158-0 (Version None)
Quarter: 2008Q4

REPORT INFORMATION
  Report Type: 
  Country: None (occurrence: None)
  Receive Date: 20081113
  Receipt Date: 20080723
  Transmission Date: 20090506
  Serious: No
  Sender: FDA-Public Use
  Company Number: A0739108A

PATIENT
  Age: 68 Year
  Sex: Female

DRUGS (1)
  1. COREG [Suspect]
     Indication: HYPERTENSION
     Route: 065
     Dates: start: 20080605

REACTIONS (5)
  - ARTHRALGIA [None]
  - DRY EYE [None]
  - DRY MOUTH [None]
  - DYSPNOEA [None]
  - PAIN IN EXTREMITY [None]
